FAERS Safety Report 9621922 (Version 2)
Quarter: 2013Q4

REPORT INFORMATION
  Report Type: Spontaneous
  Country: US (occurrence: US)
  Receive Date: 20131015
  Receipt Date: 20131015
  Transmission Date: 20140711
  Serious: No
  Sender: FDA-Public Use
  Company Number: US-PURDUE-USA-2012-0083376

PATIENT
  Sex: Female
  Weight: 111.57 kg

DRUGS (1)
  1. BUTRANS [Suspect]
     Indication: PAIN
     Dosage: 20 MCG/HR, UNK
     Route: 062
     Dates: start: 20120223

REACTIONS (3)
  - Application site burn [Not Recovered/Not Resolved]
  - Application site erythema [Unknown]
  - Application site vesicles [Unknown]
